FAERS Safety Report 6918139-5 (Version None)
Quarter: 2010Q3

REPORT INFORMATION
  Report Type: 
  Country: None (occurrence: None)
  Receive Date: 20100806
  Receipt Date: 20100729
  Transmission Date: 20110219
  Serious: Yes (Hospitalization)
  Sender: FDA-Public Use
  Company Number: ABCOB-10-0382

PATIENT
  Age: 66 Year
  Sex: Female
  Weight: 68 kg

DRUGS (16)
  1. ABRAXANE [Suspect]
     Indication: PANCREATIC CARCINOMA
     Dosage: 100 MG
     Dates: start: 20100701, end: 20100708
  2. ERLOTINIB HYDROCHLORIDE [Suspect]
     Indication: PANCREATIC CARCINOMA
     Dosage: 100 MG, ORAL
     Route: 048
     Dates: start: 20100701, end: 20100714
  3. GEMCITABINE [Suspect]
     Indication: PANCREATIC CARCINOMA
     Dosage: 1000 MG, INTRAVENOUS
     Route: 042
     Dates: start: 20100211, end: 20100708
  4. METOPROLOL SUCCINATE [Concomitant]
  5. LOVASTATIN [Concomitant]
  6. DICLOFENAC SODIUM [Concomitant]
  7. IBUPROFEN [Concomitant]
  8. MIRALAX [Concomitant]
  9. AMLODIPINE [Concomitant]
  10. AMBIEN [Concomitant]
  11. OXYCODONE HCL [Concomitant]
  12. COMPAZINE (NAPROXEN SODIUM) [Concomitant]
  13. ONDANSETRON [Concomitant]
  14. ROBITUSSIN (GUAIFENESIN) [Concomitant]
  15. ATIVAN [Concomitant]
  16. METOCLOPRAMIDE [Concomitant]

REACTIONS (17)
  - ABDOMINAL PAIN [None]
  - BODY TEMPERATURE INCREASED [None]
  - BRAIN MASS [None]
  - CENTRAL NERVOUS SYSTEM LESION [None]
  - FEELING COLD [None]
  - MENINGIOMA [None]
  - METASTASIS [None]
  - NAUSEA [None]
  - NIGHT BLINDNESS [None]
  - NIGHT SWEATS [None]
  - OPTIC NEUROPATHY [None]
  - PRURITUS [None]
  - RASH [None]
  - RETINAL VASCULAR DISORDER [None]
  - TEMPORAL ARTERITIS [None]
  - TOXIC OPTIC NEUROPATHY [None]
  - VITAMIN A DEFICIENCY [None]
